FAERS Safety Report 24710845 (Version 2)
Quarter: 2024Q4

REPORT INFORMATION
  Report Type: Spontaneous
  Country: US (occurrence: US)
  Receive Date: 20241209
  Receipt Date: 20241217
  Transmission Date: 20250115
  Serious: Yes (Other)
  Sender: Harrow Health
  Company Number: US-IMP-2024001065

PATIENT
  Age: 89 Year
  Sex: Male

DRUGS (1)
  1. VEVYE [Suspect]
     Active Substance: CYCLOSPORINE
     Indication: Dry eye
     Route: 047
     Dates: end: 20241125

REACTIONS (9)
  - Retinal injury [Unknown]
  - Visual impairment [Unknown]
  - Corneal abrasion [Recovered/Resolved]
  - Discomfort [Unknown]
  - Apraxia [Unknown]
  - Instillation site irritation [Unknown]
  - Eye discharge [Unknown]
  - Vision blurred [Unknown]
  - Instillation site pain [Unknown]

NARRATIVE: CASE EVENT DATE: 20241125
